FAERS Safety Report 15582851 (Version 2)
Quarter: 2018Q4

REPORT INFORMATION
  Report Type: Spontaneous
  Country: UA (occurrence: UA)
  Receive Date: 20181103
  Receipt Date: 20181228
  Transmission Date: 20190205
  Serious: No
  Sender: FDA-Public Use
  Company Number: UA-ROCHE-2208158

PATIENT
  Age: 25 Year
  Sex: Female

DRUGS (2)
  1. GANCICLOVIR. [Suspect]
     Active Substance: GANCICLOVIR
     Indication: COGAN^S SYNDROME
  2. GANCICLOVIR. [Suspect]
     Active Substance: GANCICLOVIR
     Indication: KERATITIS INTERSTITIAL
     Route: 065

REACTIONS (3)
  - Intentional product use issue [Unknown]
  - Off label use [Unknown]
  - No adverse event [Unknown]
